FAERS Safety Report 20350525 (Version 1)
Quarter: 2022Q1

REPORT INFORMATION
  Report Type: Spontaneous
  Country: US (occurrence: US)
  Receive Date: 20220119
  Receipt Date: 20220119
  Transmission Date: 20220423
  Serious: Yes (Other)
  Sender: FDA-Public Use
  Company Number: US-PFIZER INC-2021800684

PATIENT
  Age: 57 Year
  Sex: Female

DRUGS (1)
  1. XELJANZ XR [Suspect]
     Active Substance: TOFACITINIB CITRATE
     Indication: Psoriatic arthropathy
     Dosage: 11 MG, DAILY
     Route: 048
     Dates: start: 202009

REACTIONS (9)
  - Ankle operation [Recovering/Resolving]
  - Nasopharyngitis [Unknown]
  - Hypertension [Unknown]
  - Chest pain [Unknown]
  - Eructation [Unknown]
  - Depressed mood [Recovering/Resolving]
  - Discouragement [Recovering/Resolving]
  - Illness [Unknown]
  - Product dose omission issue [Unknown]

NARRATIVE: CASE EVENT DATE: 20200901
